FAERS Safety Report 23351132 (Version 1)
Quarter: 2023Q4

REPORT INFORMATION
  Report Type: Report from Study
  Country: CA (occurrence: CA)
  Receive Date: 20231229
  Receipt Date: 20231229
  Transmission Date: 20240110
  Serious: Yes (Other)
  Sender: FDA-Public Use
  Company Number: CA-TAKEDA-CA201848852

PATIENT
  Age: 75 Year
  Sex: Female

DRUGS (12)
  1. HUMAN IMMUNOGLOBULIN G [Suspect]
     Active Substance: HUMAN IMMUNOGLOBULIN G
     Indication: Primary immunodeficiency syndrome
     Dosage: 8 GRAM, 1/WEEK
     Route: 058
     Dates: start: 20180427
  2. HUMAN IMMUNOGLOBULIN G [Suspect]
     Active Substance: HUMAN IMMUNOGLOBULIN G
     Dosage: 8 GRAM, 1/WEEK
     Route: 058
     Dates: start: 20180718
  3. HUMAN IMMUNOGLOBULIN G [Suspect]
     Active Substance: HUMAN IMMUNOGLOBULIN G
     Dosage: 30 GRAM, 1/WEEK
     Route: 050
  4. CETIRIZINE [Concomitant]
     Active Substance: CETIRIZINE HYDROCHLORIDE
     Indication: Product used for unknown indication
     Dosage: UNK
     Route: 065
  5. ATROVENT [Concomitant]
     Active Substance: IPRATROPIUM BROMIDE
     Indication: Product used for unknown indication
     Dosage: 4 DOSAGE FORM, BID
     Route: 065
  6. ALVESCO [Concomitant]
     Active Substance: CICLESONIDE
     Indication: Product used for unknown indication
     Dosage: 2 DOSAGE FORM, BID
     Route: 065
  7. CANNABIS SATIVA SUBSP. INDICA TOP [Concomitant]
     Active Substance: CANNABIS SATIVA SUBSP. INDICA TOP
     Indication: Product used for unknown indication
     Dosage: UNK
     Route: 065
  8. PREDNISONE [Concomitant]
     Active Substance: PREDNISONE
     Indication: Product used for unknown indication
     Dosage: UNK
     Route: 065
  9. FLUCONAZOLE [Concomitant]
     Active Substance: FLUCONAZOLE
     Indication: Product used for unknown indication
     Dosage: 5 MILLIGRAM
     Route: 065
  10. Reactine [Concomitant]
     Indication: Product used for unknown indication
     Dosage: 20 MILLIGRAM, QD
     Route: 065
  11. ADVAIR HFA [Concomitant]
     Active Substance: FLUTICASONE PROPIONATE\SALMETEROL XINAFOATE
     Dosage: 2 DOSAGE FORM, BID
  12. FASENRA [Suspect]
     Active Substance: BENRALIZUMAB

REACTIONS (14)
  - Hypothyroidism [Not Recovered/Not Resolved]
  - COVID-19 [Recovered/Resolved]
  - Mental fatigue [Unknown]
  - Infection [Unknown]
  - Abdominal discomfort [Recovering/Resolving]
  - Nasal congestion [Unknown]
  - Visual impairment [Recovering/Resolving]
  - Cough [Not Recovered/Not Resolved]
  - Headache [Recovering/Resolving]
  - Pyrexia [Recovering/Resolving]
  - Chills [Recovering/Resolving]
  - Myalgia [Recovering/Resolving]
  - Fatigue [Recovering/Resolving]
  - Dizziness [Not Recovered/Not Resolved]

NARRATIVE: CASE EVENT DATE: 20220501
